FAERS Safety Report 8267240-5 (Version None)
Quarter: 2012Q2

REPORT INFORMATION
  Report Type: 
  Country: None (occurrence: None)
  Receive Date: 20120409
  Receipt Date: 20120405
  Transmission Date: 20120825
  Serious: Yes (Hospitalization)
  Sender: FDA-Public Use
  Company Number: JP-PFIZER INC-2012080922

PATIENT
  Age: 87 Year
  Sex: Male

DRUGS (7)
  1. LOXONIN [Concomitant]
     Dosage: UNK
  2. ZOLOFT [Suspect]
     Dosage: 25 MG, 1X/DAY
     Route: 048
     Dates: end: 20120101
  3. DEPAS [Concomitant]
     Dosage: UNK
  4. PURSENNID [Concomitant]
     Dosage: UNK
  5. LANSOPRAZOLE [Concomitant]
     Dosage: UNK
  6. TAMSULOSIN HCL [Concomitant]
     Dosage: UNK
  7. MUCOSTA [Concomitant]
     Dosage: UNK

REACTIONS (2)
  - LOSS OF CONSCIOUSNESS [None]
  - TREMOR [None]
